FAERS Safety Report 17815690 (Version 1)
Quarter: 2020Q2

REPORT INFORMATION
  Report Type: Spontaneous
  Country: US (occurrence: US)
  Receive Date: 20200522
  Receipt Date: 20200522
  Transmission Date: 20200714
  Serious: Yes (Life-Threatening)
  Sender: FDA-Public Use
  Company Number: None

PATIENT
  Age: 93 Year
  Sex: Male
  Weight: 95.3 kg

DRUGS (14)
  1. FINASTERIDE 5MG [Concomitant]
     Active Substance: FINASTERIDE
     Dates: start: 20200407, end: 20200412
  2. MORPHINE 1 MG IVP [Concomitant]
     Active Substance: MORPHINE
     Dates: start: 20200408, end: 20200412
  3. ALBUTEROL MDI [Concomitant]
     Active Substance: ALBUTEROL
     Dates: start: 20200408, end: 20200413
  4. HEPARIN [Concomitant]
     Active Substance: HEPARIN SODIUM
     Dates: start: 20200407, end: 20200412
  5. HYDROCODONE/HOMATROPINE SYRUP [Concomitant]
     Active Substance: HOMATROPINE METHYLBROMIDE\HYDROCODONE BITARTRATE
     Dates: start: 20200407, end: 20200412
  6. TAMSULOSIN 0.4MG [Concomitant]
     Active Substance: TAMSULOSIN
     Dates: start: 20200407, end: 20200412
  7. ACETAMINOPHEN 650 MG [Concomitant]
     Active Substance: ACETAMINOPHEN
     Dates: start: 20200407, end: 20200412
  8. BENZONATATE 100 MG [Concomitant]
     Active Substance: BENZONATATE
     Dates: start: 20200407, end: 20200412
  9. METOPROLOL SUCCINATE 100 MG [Concomitant]
     Active Substance: METOPROLOL SUCCINATE
     Dates: start: 20200408, end: 20200412
  10. ATORVASTATIN 10MG [Concomitant]
     Active Substance: ATORVASTATIN
     Dates: start: 20200408, end: 20200412
  11. GUAIFENESIN -LA 600MG [Concomitant]
     Active Substance: GUAIFENESIN
     Dates: start: 20200407, end: 20200412
  12. HYDROXYCHLOROQUINE SULFATE. [Suspect]
     Active Substance: HYDROXYCHLOROQUINE SULFATE
     Indication: COVID-19
     Route: 048
     Dates: start: 20200408, end: 20200409
  13. ASPIRIN 81MG [Concomitant]
     Active Substance: ASPIRIN
     Dates: start: 20200407, end: 20200412
  14. PIPERACILLIN/TAZOBACTAM 3.375 GM IVPB [Concomitant]
     Active Substance: PIPERACILLIN SODIUM\TAZOBACTAM SODIUM
     Dates: start: 20200408, end: 20200412

REACTIONS (2)
  - Electrocardiogram QT prolonged [None]
  - Therapy cessation [None]

NARRATIVE: CASE EVENT DATE: 20200409
